FAERS Safety Report 7581078-3 (Version None)
Quarter: 2011Q2

REPORT INFORMATION
  Report Type: 
  Country: None (occurrence: None)
  Receive Date: 20110629
  Receipt Date: 20110623
  Transmission Date: 20111010
  Serious: Yes (Death)
  Sender: FDA-Public Use
  Company Number: PHHY2011AU56766

PATIENT
  Age: 23 Year

DRUGS (6)
  1. IBUPROFEN [Suspect]
     Dosage: UNK
  2. METRONIDAZOLE [Suspect]
  3. NORDAZEPAM [Suspect]
  4. OXYCODONE HCL [Suspect]
     Dosage: UNK
  5. BENZOYLECGONINE [Suspect]
  6. METHADONE HCL [Suspect]
     Dosage: UNK

REACTIONS (3)
  - TOXICITY TO VARIOUS AGENTS [None]
  - OVERDOSE [None]
  - ACCIDENTAL POISONING [None]
